FAERS Safety Report 7574773-3 (Version None)
Quarter: 2011Q2

REPORT INFORMATION
  Report Type: 
  Country: None (occurrence: None)
  Receive Date: 20110627
  Receipt Date: 20091122
  Transmission Date: 20111010
  Serious: Yes (Death, Hospitalization, Other)
  Sender: FDA-Public Use
  Company Number: US-BAYER-200940678NA

PATIENT
  Age: 63 Year
  Sex: Male
  Weight: 89.569 kg

DRUGS (11)
  1. FLONASE [Concomitant]
     Route: 048
  2. HEPARIN [Concomitant]
     Dosage: UNK
     Route: 042
     Dates: start: 20070424
  3. CHANTIX [Concomitant]
     Dosage: 1 MG, BID
     Route: 048
  4. ASPIRIN [Concomitant]
     Dosage: 325 MG
     Route: 048
  5. ANTIVERT [Concomitant]
     Dosage: 25 MG, TID
     Route: 048
  6. CARDIOPLEGIA [Concomitant]
  7. NAPROSYN [Concomitant]
     Dosage: 550 MG, BID
     Route: 048
  8. DIOVAN [Concomitant]
     Dosage: 12.5 MG, BID
     Route: 048
  9. PROTAMINE SULFATE [Concomitant]
  10. TRASYLOL [Suspect]
     Indication: AORTIC VALVE REPLACEMENT
     Dosage: UNK
     Route: 042
     Dates: start: 20070424
  11. CORDARONE [Concomitant]
     Dosage: 200 MG, BID
     Route: 048

REACTIONS (13)
  - STRESS [None]
  - ANXIETY [None]
  - UNEVALUABLE EVENT [None]
  - FEAR [None]
  - PAIN [None]
  - RENAL IMPAIRMENT [None]
  - RENAL INJURY [None]
  - EMOTIONAL DISTRESS [None]
  - ANHEDONIA [None]
  - INJURY [None]
  - MULTI-ORGAN FAILURE [None]
  - RENAL FAILURE [None]
  - DEATH [None]
